FAERS Safety Report 16178805 (Version 1)
Quarter: 2019Q2

REPORT INFORMATION
  Report Type: Spontaneous
  Country: ES (occurrence: ES)
  Receive Date: 20190410
  Receipt Date: 20190410
  Transmission Date: 20190711
  Serious: Yes (Hospitalization)
  Sender: FDA-Public Use
  Company Number: ES-TEVA-2019-ES-1033959

PATIENT
  Age: 50 Year
  Sex: Female

DRUGS (2)
  1. IOMEPROL (1009A) [Suspect]
     Active Substance: IOMEPROL
     Route: 048
     Dates: start: 20180530
  2. LOPERAMIDA (3327A) [Suspect]
     Active Substance: LOPERAMIDE
     Route: 048
     Dates: start: 20180530

REACTIONS (1)
  - Drug reaction with eosinophilia and systemic symptoms [Recovered/Resolved]

NARRATIVE: CASE EVENT DATE: 20180530
